FAERS Safety Report 6045055-6 (Version None)
Quarter: 2009Q1

REPORT INFORMATION
  Report Type: 
  Country: None (occurrence: None)
  Receive Date: 20090121
  Receipt Date: 20090115
  Transmission Date: 20090719
  Serious: Yes (Death)
  Sender: FDA-Public Use
  Company Number: US-BRISTOL-MYERS SQUIBB COMPANY-14472773

PATIENT
  Age: 82 Year
  Sex: Male

DRUGS (9)
  1. WARFARIN SODIUM [Suspect]
     Route: 048
  2. FERROUS SULFATE TAB [Suspect]
     Route: 048
  3. POTASSIUM CHLORIDE [Suspect]
     Route: 048
  4. FLUOXETINE HCL [Suspect]
     Route: 048
  5. RAMIPRIL [Suspect]
     Route: 048
  6. AMIODARONE HCL [Suspect]
     Route: 048
  7. FUROSEMIDE [Suspect]
     Route: 048
  8. CARVEDILOL [Suspect]
     Route: 048
  9. GLYCOSIDE [Suspect]
     Route: 048

REACTIONS (1)
  - DRUG TOXICITY [None]
